FAERS Safety Report 18959879 (Version 1)
Quarter: 2021Q1

REPORT INFORMATION
  Report Type: Report from Study
  Country: US (occurrence: US)
  Receive Date: 20210302
  Receipt Date: 20210302
  Transmission Date: 20210420
  Serious: Yes (Other)
  Sender: FDA-Public Use
  Company Number: US-PFIZER INC-2020020867

PATIENT
  Age: 63 Year
  Sex: Female

DRUGS (2)
  1. IBRANCE [Suspect]
     Active Substance: PALBOCICLIB
     Indication: BREAST CANCER FEMALE
     Dosage: 125 MG, CYCLIC (125 MG DAILY FOR 21 DAYS ON, 7 DAYS OFF)
     Route: 048
     Dates: start: 201701, end: 202010
  2. IBRANCE [Suspect]
     Active Substance: PALBOCICLIB
     Dosage: 100 MG, CYCLIC (21 DAYS ON AND 7 DAYS OFF)
     Route: 048
     Dates: start: 20210101

REACTIONS (7)
  - White blood cell count decreased [Recovering/Resolving]
  - Red blood cell count decreased [Recovering/Resolving]
  - Leukopenia [Unknown]
  - Haemoglobin decreased [Recovering/Resolving]
  - Product dose omission issue [Unknown]
  - Rhinorrhoea [Unknown]
  - Fatigue [Unknown]
